FAERS Safety Report 15015801 (Version 1)
Quarter: 2018Q2

REPORT INFORMATION
  Report Type: Spontaneous
  Country: DE (occurrence: DE)
  Receive Date: 20180615
  Receipt Date: 20180615
  Transmission Date: 20180711
  Serious: Yes (Hospitalization)
  Sender: FDA-Public Use
  Company Number: DE-TEVA-2018-DE-907665

PATIENT
  Age: 75 Year
  Sex: Female

DRUGS (20)
  1. NITROLINGUAL [Concomitant]
     Active Substance: NITROGLYCERIN
     Dosage: NEED
  2. HYDROCHLOROTHIAZIDE. [Suspect]
     Active Substance: HYDROCHLOROTHIAZIDE
     Dosage: 1-0-0-0
     Route: 065
  3. ZOPICLON [Concomitant]
     Active Substance: ZOPICLONE
     Dosage: 0-0-1-0
  4. SIMVASTATIN. [Concomitant]
     Active Substance: SIMVASTATIN
     Dosage: 0-0-0.5-0
  5. NITRENDIPIN [Concomitant]
     Active Substance: NITRENDIPINE
     Dosage: 1-0-1-0
  6. METAMIZOL [Concomitant]
     Active Substance: METAMIZOLE SODIUM
     Dosage: 1-0-1-0
  7. FOSTER [Concomitant]
     Active Substance: BECLOMETHASONE\FORMOTEROL
     Dosage: NK MICROG, 1-0-1-0
  8. CLOPIDOGREL [Concomitant]
     Active Substance: CLOPIDOGREL BISULFATE
     Dosage: 1-0-0-0
  9. TORASEMID [Suspect]
     Active Substance: TORSEMIDE
     Dosage: 1-0-0-0
     Route: 065
  10. DELIX [Concomitant]
     Active Substance: RAMIPRIL
     Dosage: 1-0-0-0
  11. ISDN 20 [Concomitant]
     Dosage: 1-0-0-0
  12. RANEXA [Concomitant]
     Active Substance: RANOLAZINE
     Dosage: 1-0-1-0
  13. METOPROLOL. [Concomitant]
     Active Substance: METOPROLOL
     Dosage: 0.5-0-0.5-0
  14. MOLSIDOMIN [Concomitant]
     Active Substance: MOLSIDOMINE
     Dosage: 0-0-1-0
  15. FENTANYL. [Concomitant]
     Active Substance: FENTANYL
     Dosage: 25 G/H, EVERY 3 DAYS CHANGE
     Route: 062
  16. PANTOPRAZOL [Concomitant]
     Active Substance: PANTOPRAZOLE SODIUM
     Dosage: 1-0-0-0
  17. HCT 25 [Suspect]
     Active Substance: HYDROCHLOROTHIAZIDE
     Dosage: 1-0-0-0
     Route: 065
  18. ASS 100 [Concomitant]
     Active Substance: ASPIRIN
     Dosage: 0-1-0-0
  19. LAXOBERAL [Concomitant]
     Active Substance: SODIUM PICOSULFATE
     Dosage: 0-0-8-0, TROPFEN
  20. MCP [Concomitant]
     Active Substance: METOCLOPRAMIDE HYDROCHLORIDE
     Dosage: NEED

REACTIONS (4)
  - Drug prescribing error [Unknown]
  - Fatigue [Unknown]
  - Decreased appetite [Unknown]
  - Renal impairment [Unknown]
